FAERS Safety Report 8026967-0 (Version None)
Quarter: 2012Q1

REPORT INFORMATION
  Report Type: 
  Country: None (occurrence: None)
  Receive Date: 20120106
  Receipt Date: 20120103
  Transmission Date: 20120608
  Serious: Yes (Death)
  Sender: FDA-Public Use
  Company Number: US-JNJFOC-20111103954

PATIENT
  Age: 67 Year
  Sex: Male

DRUGS (10)
  1. ASPIRIN [Concomitant]
  2. LISINOPRIL [Concomitant]
  3. ACTONEL [Concomitant]
  4. GLIMEPIRIDE [Concomitant]
  5. SIMVASTATIN [Concomitant]
  6. STELARA [Suspect]
     Indication: PSORIASIS
     Route: 058
     Dates: start: 20110825, end: 20110923
  7. CARVEDILOL [Concomitant]
  8. LYRICA [Concomitant]
  9. METFORMIN HCL [Concomitant]
  10. PREDNISONE TAB [Concomitant]

REACTIONS (1)
  - MYOCARDIAL INFARCTION [None]
